FAERS Safety Report 9881985 (Version 6)
Quarter: 2014Q2

REPORT INFORMATION
  Report Type: Report from Study
  Country: US (occurrence: US)
  Receive Date: 20140207
  Receipt Date: 20140603
  Transmission Date: 20141212
  Serious: Yes (Hospitalization)
  Sender: FDA-Public Use
  Company Number: US-BRISTOL-MYERS SQUIBB COMPANY-20124285

PATIENT
  Age: 15 Year
  Sex: Male
  Weight: 55.2 kg

DRUGS (7)
  1. IPILIMUMAB [Suspect]
     Indication: MALIGNANT MELANOMA
     Dosage: 2-2DEC13-572MG?23-23DEC13-571MG
     Route: 042
     Dates: start: 20131202, end: 20131223
  2. DIPHENHYDRAMINE [Concomitant]
     Dosage: 1DF=2 UNITS NOS
     Dates: start: 20131211
  3. IBUPROFEN [Concomitant]
     Dates: start: 20131218
  4. ONDANSETRON HCL [Concomitant]
     Dates: start: 20131223
  5. IMODIUM [Concomitant]
     Dates: start: 20131223
  6. PEPCID [Concomitant]
     Dates: start: 20140113
  7. PREDNISONE [Concomitant]
     Dates: start: 20140113

REACTIONS (1)
  - Hypokalaemia [Recovered/Resolved]
